FAERS Safety Report 23182254 (Version 1)
Quarter: 2023Q4

REPORT INFORMATION
  Report Type: Spontaneous
  Country: US (occurrence: None)
  Receive Date: 20231114
  Receipt Date: 20231114
  Transmission Date: 20240110
  Serious: Yes (Disabling)
  Sender: FDA-Public Use
  Company Number: None

PATIENT
  Age: 31 Year
  Sex: Male

DRUGS (1)
  1. HERBALS\MITRAGYNINE [Suspect]
     Active Substance: HERBALS\MITRAGYNINE
     Indication: Pain
     Dates: start: 20231113

REACTIONS (3)
  - Recalled product administered [None]
  - Salmonellosis [None]
  - Substance use [None]

NARRATIVE: CASE EVENT DATE: 20231113
